FAERS Safety Report 9508090 (Version 1)
Quarter: 2013Q3

REPORT INFORMATION
  Report Type: Spontaneous
  Country: GB (occurrence: GB)
  Receive Date: 20130909
  Receipt Date: 20130909
  Transmission Date: 20140515
  Serious: Yes (Hospitalization)
  Sender: FDA-Public Use
  Company Number: PHHY2013GB094693

PATIENT
  Age: 54 Year
  Sex: Female

DRUGS (3)
  1. MIRTAZAPINE [Suspect]
     Indication: DEPRESSION
     Route: 048
     Dates: end: 2012
  2. PRIADEL [Concomitant]
     Dosage: 500 MG, UNK
  3. DIAZEPAM [Concomitant]

REACTIONS (4)
  - Hepatic function abnormal [Recovered/Resolved]
  - Pancreatitis [Recovered/Resolved]
  - Amylase abnormal [Recovered/Resolved]
  - Lipase abnormal [Recovered/Resolved]
